FAERS Safety Report 7109128-9 (Version None)
Quarter: 2010Q4

REPORT INFORMATION
  Report Type: 
  Country: None (occurrence: None)
  Receive Date: 20101117
  Receipt Date: 20101103
  Transmission Date: 20110411
  Serious: Yes (Other)
  Sender: FDA-Public Use
  Company Number: IT-PFIZER INC-2010139916

PATIENT
  Age: 70 Year
  Sex: Female

DRUGS (2)
  1. ATARAX [Suspect]
     Dosage: UNK
     Route: 048
     Dates: start: 20100702, end: 20100101
  2. PRAZENE [Concomitant]

REACTIONS (3)
  - ABDOMINAL DISTENSION [None]
  - DYSENTERY [None]
  - SOMNOLENCE [None]
